FAERS Safety Report 4603620-4 (Version None)
Quarter: 2005Q1

REPORT INFORMATION
  Report Type: 
  Country: None (occurrence: None)
  Receive Date: 20050310
  Receipt Date: 20050223
  Transmission Date: 20050727
  Serious: Yes (Hospitalization)
  Sender: FDA-Public Use
  Company Number: ES-BOEHRINGER INGELHEIM PHARMMACEUTICALS, INC.-2005-ES-00065ES

PATIENT
  Age: 82 Year
  Sex: Male

DRUGS (6)
  1. UROLOSIN [Suspect]
     Indication: BENIGN PROSTATIC HYPERPLASIA
     Route: 048
     Dates: start: 20040506, end: 20040516
  2. PROSCAR [Concomitant]
     Indication: BENIGN PROSTATIC HYPERPLASIA
     Route: 048
     Dates: start: 20040506
  3. ADIRO [Concomitant]
     Route: 048
  4. DINISOR [Concomitant]
  5. ACOVIL [Concomitant]
  6. NITRODERM MATRIX [Concomitant]
     Route: 062

REACTIONS (3)
  - ASTHENIA [None]
  - COORDINATION ABNORMAL [None]
  - DIZZINESS [None]
